FAERS Safety Report 6861174-6 (Version None)
Quarter: 2010Q3

REPORT INFORMATION
  Report Type: 
  Country: None (occurrence: None)
  Receive Date: 20100720
  Receipt Date: 20100708
  Transmission Date: 20110219
  Serious: Yes (Other)
  Sender: FDA-Public Use
  Company Number: US-PFIZER INC-2010086112

PATIENT
  Sex: Male
  Weight: 77.098 kg

DRUGS (6)
  1. GEODON [Suspect]
     Indication: BIPOLAR DISORDER
     Dosage: 40 MG, 2X/DAY
     Route: 048
     Dates: start: 20100501
  2. GEODON [Suspect]
     Dosage: 60 MG, 2X/DAY
     Dates: start: 20100101
  3. CIMETIDINE [Concomitant]
     Dosage: UNK
  4. ARMODAFINIL [Concomitant]
     Indication: NARCOLEPSY
     Dosage: UNK
  5. KLONOPIN [Concomitant]
     Indication: ANXIETY
     Dosage: UNK, AS NEEDED
  6. METHADONE [Concomitant]
     Indication: PERIPHERAL NERVE INJURY
     Dosage: UNK

REACTIONS (8)
  - ANXIETY [None]
  - DRUG INEFFECTIVE [None]
  - HYPERHIDROSIS [None]
  - INSOMNIA [None]
  - NAUSEA [None]
  - PANIC ATTACK [None]
  - TREMOR [None]
  - VOMITING [None]
